FAERS Safety Report 9383194 (Version 1)
Quarter: 2013Q3

REPORT INFORMATION
  Report Type: Report from Study
  Country: GB (occurrence: GB)
  Receive Date: 20130704
  Receipt Date: 20130704
  Transmission Date: 20140515
  Serious: Yes (Hospitalization)
  Sender: FDA-Public Use
  Company Number: GB-ROCHE-1244587

PATIENT
  Sex: Male
  Weight: 88 kg

DRUGS (3)
  1. RITUXIMAB [Suspect]
     Indication: RHEUMATOID ARTHRITIS
     Dosage: MIOST RECENT DOSE RECEIVED ON 06/JUN/2012
     Route: 065
     Dates: start: 20090108
  2. METHOTREXATE [Concomitant]
  3. SULFASALAZINE [Concomitant]

REACTIONS (2)
  - Anaemia [Unknown]
  - Confusional state [Unknown]
